FAERS Safety Report 25632906 (Version 1)
Quarter: 2025Q3

REPORT INFORMATION
  Report Type: Spontaneous
  Country: US (occurrence: US)
  Receive Date: 20250801
  Receipt Date: 20250801
  Transmission Date: 20251021
  Serious: No
  Sender: GRIFOLS
  Company Number: US-IGSA-BIG0035211

PATIENT
  Age: 60 Year
  Sex: Male

DRUGS (2)
  1. GAMUNEX-C [Suspect]
     Active Substance: HUMAN IMMUNOGLOBULIN G
     Indication: Off label use
     Dosage: 80 GRAM, Q.4WK.
     Route: 042
     Dates: start: 202505, end: 20250509
  2. GAMUNEX-C [Suspect]
     Active Substance: HUMAN IMMUNOGLOBULIN G
     Indication: Myasthenia gravis

REACTIONS (2)
  - Fall [Unknown]
  - Lip injury [Unknown]

NARRATIVE: CASE EVENT DATE: 20250501
